FAERS Safety Report 4754830-7 (Version None)
Quarter: 2005Q3

REPORT INFORMATION
  Report Type: 
  Country: None (occurrence: None)
  Receive Date: 20050825
  Receipt Date: 20050816
  Transmission Date: 20060218
  Serious: Yes (Hospitalization, Other)
  Sender: FDA-Public Use
  Company Number: 2005116746

PATIENT
  Age: 89 Year
  Sex: Female
  Weight: 50 kg

DRUGS (2)
  1. FRAGMIN [Suspect]
     Indication: EMBOLISM
     Dosage: 5000 I.U. (5000 I.U., 1IN 1 D), SUBCUTANEOUS
     Route: 058
     Dates: start: 20050523, end: 20050602
  2. FRAGMIN [Suspect]
     Indication: VENOUS THROMBOSIS
     Dosage: 5000 I.U. (5000 I.U., 1IN 1 D), SUBCUTANEOUS
     Route: 058
     Dates: start: 20050523, end: 20050602

REACTIONS (4)
  - DEEP VEIN THROMBOSIS [None]
  - DEHYDRATION [None]
  - DISTURBANCE IN ATTENTION [None]
  - THROMBOCYTOPENIA [None]
